FAERS Safety Report 6790783-8 (Version None)
Quarter: 2010Q2

REPORT INFORMATION
  Report Type: 
  Country: None (occurrence: None)
  Receive Date: 20100623
  Receipt Date: 20100623
  Transmission Date: 20101027
  Serious: Yes (Hospitalization)
  Sender: FDA-Public Use
  Company Number: None

PATIENT
  Sex: Female
  Weight: 104.3273 kg

DRUGS (2)
  1. GAMMAGARD [Suspect]
     Indication: CHRONIC INFLAMMATORY DEMYELINATING POLYRADICULONEUROPATHY
     Dosage: 40 GM IV
     Route: 042
     Dates: start: 20100527
  2. GAMMAGARD [Suspect]
     Indication: CHRONIC INFLAMMATORY DEMYELINATING POLYRADICULONEUROPATHY
     Dosage: 40 GM IV
     Route: 042
     Dates: start: 20100528

REACTIONS (1)
  - HEADACHE [None]
